FAERS Safety Report 15838167 (Version 1)
Quarter: 2019Q1

REPORT INFORMATION
  Report Type: Spontaneous
  Country: DK (occurrence: DK)
  Receive Date: 20190117
  Receipt Date: 20190117
  Transmission Date: 20190417
  Serious: Yes (Hospitalization)
  Sender: FDA-Public Use
  Company Number: DK-PFIZER INC-2019019001

PATIENT
  Age: 43 Year
  Sex: Female

DRUGS (2)
  1. DALACIN [Suspect]
     Active Substance: CLINDAMYCIN
     Dosage: ONLY TOOK 1 CAPSULE AT 18:00 O^CLOCK
     Route: 048
     Dates: start: 20181122, end: 20181122
  2. DALACIN [Suspect]
     Active Substance: CLINDAMYCIN
     Indication: CHRONIC SINUSITIS
     Dosage: 600 MG, 1X/DAY
     Route: 048
     Dates: start: 20181122, end: 20181122

REACTIONS (4)
  - Angioedema [Recovered/Resolved]
  - Urticaria [Recovered/Resolved]
  - Swollen tongue [Recovered/Resolved]
  - Product use issue [Unknown]

NARRATIVE: CASE EVENT DATE: 20181122
